FAERS Safety Report 20461715 (Version 4)
Quarter: 2022Q1

REPORT INFORMATION
  Report Type: Report from Study
  Country: CA (occurrence: CA)
  Receive Date: 20220211
  Receipt Date: 20220316
  Transmission Date: 20220423
  Serious: Yes (Death, Hospitalization, Other)
  Sender: FDA-Public Use
  Company Number: CA-SA-SAC20220208001157

PATIENT
  Age: 82 Year
  Sex: Female

DRUGS (1)
  1. CEMIPLIMAB [Suspect]
     Active Substance: CEMIPLIMAB
     Indication: Non-small cell lung cancer
     Dosage: 350 MG, Q3W
     Route: 041
     Dates: start: 20220124, end: 20220124

REACTIONS (11)
  - Death [Fatal]
  - Hospitalisation [Recovering/Resolving]
  - Pain [Recovering/Resolving]
  - Arthralgia [Recovering/Resolving]
  - Asthenia [Recovering/Resolving]
  - Condition aggravated [Not Recovered/Not Resolved]
  - Delusional disorder, unspecified type [Recovering/Resolving]
  - Amnesia [Recovering/Resolving]
  - Dehydration [Recovering/Resolving]
  - COVID-19 [Recovering/Resolving]
  - SARS-CoV-2 test positive [Recovering/Resolving]

NARRATIVE: CASE EVENT DATE: 20220101
